FAERS Safety Report 25918585 (Version 1)
Quarter: 2025Q4

REPORT INFORMATION
  Report Type: Other
  Country: EU (occurrence: EU)
  Receive Date: 20251014
  Receipt Date: 20251014
  Transmission Date: 20260119
  Serious: Yes (Hospitalization)
  Sender: ZYDUS PHARM
  Company Number: None

PATIENT

DRUGS (1)
  1. IRBESARTAN [Suspect]
     Active Substance: IRBESARTAN
     Indication: Medication error
     Dosage: 150 MILLIGRAM, 1 TOTAL
     Route: 048
     Dates: start: 20250806, end: 20250806

REACTIONS (2)
  - Hypotension [Recovering/Resolving]
  - Wrong drug [Recovered/Resolved]

NARRATIVE: CASE EVENT DATE: 20250806
